FAERS Safety Report 11687710 (Version 2)
Quarter: 2015Q4

REPORT INFORMATION
  Report Type: Spontaneous
  Country: US (occurrence: US)
  Receive Date: 20151030
  Receipt Date: 20151102
  Transmission Date: 20160304
  Serious: Yes (Hospitalization, Other)
  Sender: FDA-Public Use
  Company Number: US-ASTRAZENECA-2015SF05108

PATIENT
  Age: 60 Year
  Sex: Male
  Weight: 122 kg

DRUGS (2)
  1. NEXIUM 24HR [Suspect]
     Active Substance: ESOMEPRAZOLE MAGNESIUM
     Indication: GASTROOESOPHAGEAL REFLUX DISEASE
     Dosage: 22.3 MG, ONCE A DAY FOR 4 DOSES
     Route: 048
     Dates: start: 20150925, end: 20150930
  2. NEXIUM 24HR [Suspect]
     Active Substance: ESOMEPRAZOLE MAGNESIUM
     Indication: DYSPEPSIA
     Dosage: 22.3 MG, ONCE A DAY FOR 4 DOSES
     Route: 048
     Dates: start: 20150925, end: 20150930

REACTIONS (9)
  - Eosinophils urine present [Not Recovered/Not Resolved]
  - Diarrhoea [Unknown]
  - Hypotension [Unknown]
  - Renal disorder [Unknown]
  - Dizziness [Unknown]
  - Dehydration [Unknown]
  - Dyspepsia [Unknown]
  - Feeling abnormal [Unknown]
  - Drug ineffective [Unknown]

NARRATIVE: CASE EVENT DATE: 20150930
